FAERS Safety Report 10765705 (Version 1)
Quarter: 2015Q1

REPORT INFORMATION
  Report Type: Spontaneous
  Country: US (occurrence: None)
  Receive Date: 20150204
  Receipt Date: 20150204
  Transmission Date: 20150721
  Serious: Yes (Disabling)
  Sender: FDA-Public Use
  Company Number: None

PATIENT
  Age: 66 Year
  Sex: Female
  Weight: 81.65 kg

DRUGS (2)
  1. LEVOFLOXACIN 500 MG LUPIN [Suspect]
     Active Substance: LEVOFLOXACIN
     Indication: EAR INFECTION
     Dosage: 1 TABLET ONCE DAILY TAKEN BY MOUTH
     Route: 048
     Dates: start: 20150124, end: 20150126
  2. LEVOFLOXACIN 500 MG LUPIN [Suspect]
     Active Substance: LEVOFLOXACIN
     Indication: SINUS DISORDER
     Dosage: 1 TABLET ONCE DAILY TAKEN BY MOUTH
     Route: 048
     Dates: start: 20150124, end: 20150126

REACTIONS (11)
  - Arthralgia [None]
  - Joint stiffness [None]
  - Joint range of motion decreased [None]
  - Insomnia [None]
  - Burning sensation [None]
  - Paraesthesia [None]
  - Myalgia [None]
  - Gait disturbance [None]
  - Musculoskeletal pain [None]
  - Pain in extremity [None]
  - Tendon pain [None]

NARRATIVE: CASE EVENT DATE: 20150124
